FAERS Safety Report 7632287-6 (Version None)
Quarter: 2011Q3

REPORT INFORMATION
  Report Type: 
  Country: None (occurrence: None)
  Receive Date: 20110725
  Receipt Date: 20100727
  Transmission Date: 20111222
  Serious: No
  Sender: FDA-Public Use
  Company Number: US-BRISTOL-MYERS SQUIBB COMPANY-15193691

PATIENT
  Age: 72 Year
  Sex: Female
  Weight: 77 kg

DRUGS (7)
  1. COUMADIN [Suspect]
     Indication: CEREBROVASCULAR ACCIDENT
     Dosage: 1 AND HALF TABLET. THERAPY CONTINUED.
     Route: 048
     Dates: start: 20091101
  2. PRAVASTATIN MR [Concomitant]
  3. METOPROLOL TARTRATE [Concomitant]
  4. TYLENOL-500 [Concomitant]
  5. FOLIC ACID [Concomitant]
  6. VITAMIN TAB [Concomitant]
  7. FISH OIL [Concomitant]

REACTIONS (2)
  - CARDIOVASCULAR DISORDER [None]
  - PAIN IN EXTREMITY [None]
